FAERS Safety Report 25767575 (Version 1)
Quarter: 2025Q3

REPORT INFORMATION
  Report Type: Spontaneous
  Country: US (occurrence: None)
  Receive Date: 20250904
  Receipt Date: 20250904
  Transmission Date: 20251020
  Serious: Yes (Other)
  Sender: FDA-CTU
  Company Number: None

PATIENT
  Age: 63 Year
  Sex: Male

DRUGS (1)
  1. OPZELURA [Suspect]
     Active Substance: RUXOLITINIB PHOSPHATE
     Indication: Vitiligo
     Dosage: FREQUENCY : TWICE A DAY;?
     Route: 061
     Dates: start: 20241115, end: 20250825

REACTIONS (4)
  - Fatigue [None]
  - Dyspnoea [None]
  - Headache [None]
  - Iron deficiency anaemia [None]

NARRATIVE: CASE EVENT DATE: 20241130
